FAERS Safety Report 9397139 (Version 1)
Quarter: 2013Q3

REPORT INFORMATION
  Report Type: Spontaneous
  Country: SI (occurrence: SI)
  Receive Date: 20130712
  Receipt Date: 20130712
  Transmission Date: 20140515
  Serious: Yes (Other)
  Sender: FDA-Public Use
  Company Number: PHHY2013SI073942

PATIENT
  Age: 80 Year
  Sex: Female

DRUGS (3)
  1. EXELON [Suspect]
     Indication: DEMENTIA ALZHEIMER^S TYPE
     Dosage: 1.5 MG, BID
     Route: 048
  2. EXELON [Suspect]
     Dosage: 15 MG, (6 MG BID AND 3 MG QD) DAILY
     Route: 048
     Dates: start: 20130709
  3. EXELON [Suspect]
     Dosage: 1.5 MG, BID
     Route: 048

REACTIONS (3)
  - Arrhythmia [Recovered/Resolved]
  - Overdose [Recovered/Resolved]
  - Hyperhidrosis [Recovered/Resolved]
